FAERS Safety Report 4552618-3 (Version None)
Quarter: 2005Q1

REPORT INFORMATION
  Report Type: 
  Country: None (occurrence: None)
  Receive Date: 20050114
  Receipt Date: 20041129
  Transmission Date: 20050727
  Serious: No
  Sender: FDA-Public Use
  Company Number: US-GLAXOSMITHKLINE-A0535228A

PATIENT
  Age: 73 Year
  Sex: Female

DRUGS (3)
  1. IMITREX [Suspect]
     Indication: MIGRAINE
     Route: 065
  2. NAMENDA [Suspect]
     Indication: APHASIA
     Route: 048
     Dates: start: 20040201, end: 20041122
  3. TYLENOL [Concomitant]

REACTIONS (3)
  - DIZZINESS [None]
  - FLUSHING [None]
  - NAUSEA [None]
